FAERS Safety Report 24170050 (Version 3)
Quarter: 2024Q4

REPORT INFORMATION
  Report Type: Report from Study
  Country: US (occurrence: US)
  Receive Date: 20240803
  Receipt Date: 20241016
  Transmission Date: 20250115
  Serious: No
  Sender: ABBVIE
  Company Number: US-ABBVIE-5861829

PATIENT
  Age: 43 Year
  Sex: Female
  Weight: 136 kg

DRUGS (13)
  1. HUMIRA [Suspect]
     Active Substance: ADALIMUMAB
     Indication: Rheumatoid arthritis
     Dosage: FORM STRENGTH: 40 MG / 0.4 ML, CITRATE FREE
     Route: 058
     Dates: start: 20230301
  2. DIETARY SUPPLEMENT\GRAPE SEED EXTRACT [Concomitant]
     Active Substance: DIETARY SUPPLEMENT\GRAPE SEED EXTRACT
     Indication: Multiple allergies
     Route: 048
     Dates: start: 20050215
  3. SYMBICORT [Concomitant]
     Active Substance: BUDESONIDE\FORMOTEROL FUMARATE DIHYDRATE
     Indication: Asthma
     Dosage: DOSE FORM: INHALER?DOSE: 2 PUFFS, INHALATION VIA MOUTH
     Route: 055
     Dates: start: 20231001
  4. MUCINEX [Concomitant]
     Active Substance: GUAIFENESIN
     Indication: Asthma
     Dosage: DOSE FORM: PILL
     Route: 048
     Dates: start: 20010101
  5. FOLIC ACID [Concomitant]
     Active Substance: FOLIC ACID
     Indication: Rheumatoid arthritis
     Dosage: DOSE FORM: PILL
     Route: 048
     Dates: start: 20210901
  6. FERROUS SULFATE [Concomitant]
     Active Substance: FERROUS SULFATE
     Indication: Anaemia
     Dosage: DOSE FORM: PILL
     Route: 048
     Dates: start: 20181210
  7. VITAMIN D3 [Concomitant]
     Active Substance: CHOLECALCIFEROL
     Indication: Immune system disorder
     Route: 065
     Dates: start: 2020
  8. MAGNESIUM GLYCINATE [Concomitant]
     Active Substance: MAGNESIUM GLYCINATE
     Indication: Prophylaxis
     Dosage: AT NIGHT
     Route: 065
     Dates: start: 20220201
  9. ALLEGRA [Concomitant]
     Active Substance: FEXOFENADINE HYDROCHLORIDE
     Indication: Multiple allergies
     Dosage: DOSE FORM: PILL?AT NIGHT
     Route: 048
     Dates: start: 20200201
  10. SINGULAIR [Concomitant]
     Active Substance: MONTELUKAST SODIUM
     Indication: Multiple allergies
     Dosage: DOSE FORM: PILL
     Route: 048
     Dates: start: 2005
  11. MELATONIN [Concomitant]
     Active Substance: MELATONIN
     Indication: Sleep disorder
     Dosage: AT NIGHT
     Route: 048
     Dates: start: 2009
  12. PLAQUENIL [Concomitant]
     Active Substance: HYDROXYCHLOROQUINE SULFATE
     Indication: Rheumatoid arthritis
     Dosage: DOSE FORM: PILL
     Dates: start: 20210901
  13. METHOTREXATE [Concomitant]
     Active Substance: METHOTREXATE
     Indication: Rheumatoid arthritis
     Dosage: FORM STRENGTH: 2.5 MG?DOSE FORM: PILL
     Route: 065
     Dates: start: 2021

REACTIONS (3)
  - Musculoskeletal disorder [Not Recovered/Not Resolved]
  - Arthralgia [Not Recovered/Not Resolved]
  - Pain in extremity [Not Recovered/Not Resolved]

NARRATIVE: CASE EVENT DATE: 20240329
